FAERS Safety Report 8416237-0 (Version None)
Quarter: 2012Q2

REPORT INFORMATION
  Report Type: 
  Country: None (occurrence: None)
  Receive Date: 20120606
  Receipt Date: 20120521
  Transmission Date: 20120825
  Serious: Yes (Other)
  Sender: FDA-Public Use
  Company Number: US-ROCHE-764232

PATIENT

DRUGS (1)
  1. XELODA [Suspect]
     Route: 048

REACTIONS (6)
  - BLOOD BILIRUBIN INCREASED [None]
  - INFECTION [None]
  - MUSCULOSKELETAL PAIN [None]
  - BILE DUCT OBSTRUCTION [None]
  - COLITIS [None]
  - CHEST PAIN [None]
